FAERS Safety Report 5238694-3 (Version None)
Quarter: 2007Q1

REPORT INFORMATION
  Report Type: 
  Country: None (occurrence: None)
  Receive Date: 20070215
  Receipt Date: 20070202
  Transmission Date: 20070707
  Serious: Yes (Hospitalization)
  Sender: FDA-Public Use
  Company Number: US-SHR-US-2006-026721

PATIENT
  Age: 67 Year
  Sex: Male
  Weight: 69.388 kg

DRUGS (64)
  1. CAMPATH [Suspect]
     Indication: CHRONIC LYMPHOCYTIC LEUKAEMIA
     Dosage: 30 MG/DAY, D1-5 EVERY 28 DAYS
     Route: 058
     Dates: start: 20060710, end: 20060714
  2. CAMPATH [Suspect]
     Dosage: 30 MG/DAY, D1-5 EVERY 28 DAYS
     Route: 058
     Dates: start: 20060821, end: 20060825
  3. FLUDARA [Suspect]
     Indication: CHRONIC LYMPHOCYTIC LEUKAEMIA
     Dosage: 44.8 MG/DAY, D1-5 EVERY 28 DAYS
     Route: 042
     Dates: start: 20060710, end: 20060714
  4. FLUDARA [Suspect]
     Dosage: 44.8 MG/DAY, D1-5 EVERY 28 DAYS
     Route: 042
     Dates: start: 20060821, end: 20060825
  5. DIOVAN HCT [Concomitant]
     Indication: HYPERTENSION
     Dosage: 25/160 MG 1X/DAY
     Route: 048
     Dates: start: 19950501
  6. AVANDIA [Concomitant]
     Indication: DIABETES MELLITUS
     Dosage: 4 MG, 1X/DAY
     Route: 048
  7. FAMVIR                                  /UNK/ [Concomitant]
     Dosage: 250 MG, 2X/DAY
     Route: 048
  8. BACTRIM DS [Concomitant]
     Dosage: 1 TAB(S), 2X/DAY, Q M-W-F
     Route: 048
  9. NOVOLOG [Concomitant]
     Indication: DIABETES MELLITUS
     Dosage: 15 UNITS 2X/DAY
     Route: 058
     Dates: start: 20060601
  10. ZOCOR [Concomitant]
     Dosage: 20 MG, 1X/DAY
     Route: 048
     Dates: start: 20060601
  11. VANCOMYCIN HYDROCHLORIDE [Concomitant]
     Indication: INFECTION PROPHYLAXIS
     Dosage: 1 G, 1X/DAY
     Route: 042
     Dates: start: 20060802, end: 20060802
  12. GENTAMICIN SULFATE [Concomitant]
     Indication: INFECTION PROPHYLAXIS
     Dosage: 100 MG, 1X/DAY
     Route: 042
     Dates: start: 20060802, end: 20060802
  13. ROCEPHIN [Concomitant]
     Indication: INFECTION PROPHYLAXIS
     Dosage: 1 G, 1X/DAY
     Route: 042
     Dates: start: 20060912, end: 20060913
  14. ZOSYN [Concomitant]
     Indication: INFECTION PROPHYLAXIS
     Dosage: 3.375 G, 3X/DAY
     Route: 042
     Dates: start: 20060802, end: 20060805
  15. HEPARIN [Concomitant]
     Indication: PROPHYLAXIS
     Dosage: 1000 IU/ML, AS REQ'D
     Route: 042
     Dates: start: 20060910
  16. HEPARIN [Concomitant]
     Dosage: 5000 UNITS TID THROMBOSIS PROPHY
     Route: 058
     Dates: start: 20060920, end: 20060927
  17. ANZEMET [Concomitant]
     Dosage: 100 MG, 1X/DAY
     Route: 042
     Dates: start: 20060710, end: 20060713
  18. BENADRYL ^PFIZER WARNER-LAMBERT^ [Concomitant]
     Indication: PROPHYLAXIS
     Dosage: 25 MG, 1X/DAY
     Route: 042
     Dates: start: 20060710, end: 20060714
  19. TYLENOL (CAPLET) [Concomitant]
     Indication: PROPHYLAXIS
     Dosage: 650 MG, 1X/DAY
     Route: 048
     Dates: start: 20060710, end: 20060714
  20. TYLENOL (CAPLET) [Concomitant]
     Dosage: 650 MG, AS REQ'D FOR FEVER
     Route: 048
     Dates: start: 20060710
  21. ALOXI [Concomitant]
     Dosage: 250 A?G, 1X/DAY
     Route: 042
     Dates: start: 20060714, end: 20060714
  22. SOLU-MEDROL [Concomitant]
     Indication: PROPHYLAXIS
     Dosage: 125 MG, 1X/DAY
     Route: 042
     Dates: start: 20060711, end: 20060711
  23. SOLU-MEDROL [Concomitant]
     Dosage: 40 MG, 1X/DAY
     Route: 042
     Dates: start: 20060712, end: 20060714
  24. AMOXICILLIN [Concomitant]
     Indication: INFECTION PROPHYLAXIS
     Dosage: 500 MG, 3X/DAY
     Route: 048
     Dates: start: 20060807, end: 20060811
  25. VALCYTE [Concomitant]
     Dosage: 900 MG, 2X/DAY
     Route: 048
     Dates: start: 20060810, end: 20060823
  26. ARANESP [Concomitant]
     Dosage: 200 A?G, 1 DOSE
     Route: 058
     Dates: start: 20060725, end: 20060725
  27. ARANESP [Concomitant]
     Dosage: 200 A?G, 1 DOSE
     Route: 058
     Dates: start: 20060807, end: 20060807
  28. ARANESP [Concomitant]
     Dosage: 200 A?G, 1 DOSE
     Route: 058
     Dates: start: 20060821, end: 20060821
  29. ARANESP [Concomitant]
     Dosage: 200 A?G, 1 DOSE
     Route: 058
     Dates: start: 20060825, end: 20060825
  30. ARANESP [Concomitant]
     Dosage: 200 A?G, 1 DOSE
     Dates: start: 20060905, end: 20060905
  31. NEUPOGEN [Concomitant]
     Indication: LEUKOPENIA
     Dosage: 480 A?G, 1X/DAY
     Route: 058
     Dates: start: 20060804, end: 20060804
  32. PROCRIT [Concomitant]
     Dosage: 40000 IU, 1 DOSE
     Route: 058
     Dates: start: 20060804, end: 20060804
  33. KEPPRA [Interacting]
     Indication: CONVULSION PROPHYLAXIS
     Dosage: 500 MG, 2X/DAY
     Route: 048
     Dates: start: 20060731, end: 20060805
  34. PROTONIX [Concomitant]
     Indication: PROPHYLAXIS
     Dosage: 40 MG, 1X/DAY
     Route: 048
     Dates: start: 20060801, end: 20060804
  35. PROTONIX [Concomitant]
     Dosage: 40 MG, 1X/DAY
     Route: 042
     Dates: start: 20060730, end: 20060731
  36. PROTONIX [Concomitant]
     Dosage: 40 MG, 1X/DAY
     Route: 048
     Dates: start: 20060912, end: 20060927
  37. HYDRODIURIL [Concomitant]
     Indication: HYPERTENSION
     Dosage: 25 MG, 1X/DAY
     Route: 048
     Dates: start: 20060801, end: 20060805
  38. NAPROXEN [Concomitant]
     Indication: PAIN
     Dosage: 500 MG, 2X/DAY
     Route: 048
     Dates: start: 20060802, end: 20060805
  39. ATIVAN [Concomitant]
     Indication: ANXIETY
     Dosage: 1 MG, 1X/DAY
     Route: 042
     Dates: start: 20060731, end: 20060731
  40. DULCOLAX [Concomitant]
     Indication: COLONOSCOPY
     Dosage: 10 MG, 1X/DAY
     Route: 048
     Dates: start: 20060730, end: 20060730
  41. GOLYTELY [Concomitant]
     Indication: COLONOSCOPY
     Dosage: 2000 ML, 1X/DAY
     Route: 048
     Dates: start: 20060730, end: 20060730
  42. POTASSIUM CHLORIDE [Concomitant]
     Dosage: 40 MEQ, AS REQ'D
     Route: 048
     Dates: start: 20060803, end: 20060803
  43. FOLIC ACID [Concomitant]
     Indication: SUPPLEMENTATION THERAPY
     Dosage: 1 MG, 1X/DAY
     Route: 048
     Dates: start: 20060925
  44. FLUCONAZOLE [Concomitant]
     Indication: INFECTION PROPHYLAXIS
     Dosage: 200 MG, 1X/DAY
     Route: 042
     Dates: start: 20060913, end: 20060914
  45. LACTULOSE [Concomitant]
     Indication: CONSTIPATION
     Dosage: 15 ML, 1X/DAY
     Route: 048
     Dates: start: 20060914, end: 20060914
  46. CEFEPIME [Concomitant]
     Indication: INFECTION PROPHYLAXIS
     Dosage: 1 G, 1X/DAY
     Route: 042
     Dates: start: 20060913, end: 20060918
  47. DAPTOMYCIN [Concomitant]
     Indication: INFECTION PROPHYLAXIS
     Dosage: 250 MG, 1X/DAY
     Route: 042
     Dates: start: 20060915, end: 20060918
  48. LUMIGAN [Concomitant]
     Indication: GLAUCOMA
     Dosage: 1 GTT, BED T. BOTH EYES
     Route: 047
     Dates: start: 20060917, end: 20060926
  49. ALPHAGAN [Concomitant]
     Indication: GLAUCOMA
     Dosage: 1 GTT, 2X/DAY BOTH EYES
     Route: 047
     Dates: start: 20060917, end: 20060926
  50. COSOPT [Concomitant]
     Indication: GLAUCOMA
     Dosage: 2 GTT, 2X/DAY BOTH EYES
     Route: 047
     Dates: start: 20060917, end: 20060926
  51. REGLAN [Concomitant]
     Dosage: 5 MG, 1X/DAY
     Route: 048
     Dates: start: 20060925, end: 20060927
  52. CLONIDINE [Concomitant]
     Indication: HYPERTENSION
     Dosage: .2 MG, 3X/DAY
     Route: 048
     Dates: start: 20060925, end: 20060926
  53. CLONIDINE [Concomitant]
     Dosage: .3 MG, 3X/DAY
     Route: 048
     Dates: start: 20060926, end: 20060927
  54. COLACE [Concomitant]
     Indication: CONSTIPATION
     Dosage: 100 MG, 1X/DAY
     Route: 048
     Dates: start: 20060924, end: 20060926
  55. BENADRYL ^PFIZER WARNER-LAMBERT^ [Concomitant]
     Indication: RASH
     Dosage: 25 MG, AS REQ'D
     Route: 048
     Dates: start: 20060718, end: 20060725
  56. TYLENOL (CAPLET) [Concomitant]
     Dosage: 650 MG, 1X/DAY
     Route: 048
     Dates: start: 20060821, end: 20060825
  57. ANZEMET [Concomitant]
     Dosage: 100 MG, 1X/DAY
     Route: 042
     Dates: start: 20060821, end: 20060824
  58. ALOXI [Concomitant]
     Dosage: 250 A?G, 1X/DAY
     Route: 042
     Dates: start: 20060825, end: 20060825
  59. BENADRYL ^PFIZER WARNER-LAMBERT^ [Concomitant]
     Dosage: 25 MG, 1X/DAY
     Route: 042
     Dates: start: 20060821, end: 20060825
  60. SOLU-MEDROL [Concomitant]
     Dosage: 40 MG, 1X/DAY
     Route: 042
     Dates: start: 20060822, end: 20060822
  61. SOLU-MEDROL [Concomitant]
     Dosage: 20 MG, 1X/DAY
     Route: 042
     Dates: start: 20060823, end: 20060825
  62. ZOSYN [Concomitant]
     Dosage: 3.375 MG, 1X/DAY
     Route: 042
     Dates: start: 20060911, end: 20060911
  63. VANCOMYCIN HYDROCHLORIDE [Concomitant]
     Dosage: 1 G, 1X/DAY
     Route: 042
     Dates: start: 20060913, end: 20060913
  64. VANCOMYCIN HYDROCHLORIDE [Concomitant]
     Dosage: 1.5 G, 1X/DAY
     Route: 042
     Dates: start: 20060914, end: 20060914

REACTIONS (30)
  - BACTERIA URINE NO ORGANISM OBSERVED [None]
  - BLOOD CREATININE INCREASED [None]
  - BLOOD GLUCOSE INCREASED [None]
  - BLOOD POTASSIUM DECREASED [None]
  - BLOOD PRESSURE ORTHOSTATIC [None]
  - BLOOD SODIUM DECREASED [None]
  - BLOOD UREA INCREASED [None]
  - CARDIAC FAILURE CONGESTIVE [None]
  - CONFUSIONAL STATE [None]
  - CONVULSION [None]
  - CYTOMEGALOVIRUS TEST POSITIVE [None]
  - DISEASE PROGRESSION [None]
  - DIZZINESS [None]
  - FEELING HOT [None]
  - HYPERHIDROSIS [None]
  - HYPERTENSION [None]
  - ILEUS [None]
  - LOSS OF CONSCIOUSNESS [None]
  - LOWER GASTROINTESTINAL HAEMORRHAGE [None]
  - LYMPHADENOPATHY [None]
  - MENTAL STATUS CHANGES [None]
  - PANCYTOPENIA [None]
  - PLEURAL EFFUSION [None]
  - PYREXIA [None]
  - RENAL FAILURE ACUTE [None]
  - RENAL TUBULAR NECROSIS [None]
  - SEPSIS SYNDROME [None]
  - SYNCOPE [None]
  - SYNCOPE VASOVAGAL [None]
  - VOMITING [None]
